FAERS Safety Report 6685094-5 (Version None)
Quarter: 2010Q2

REPORT INFORMATION
  Report Type: 
  Country: None (occurrence: None)
  Receive Date: 20100416
  Receipt Date: 20100414
  Transmission Date: 20101027
  Serious: Yes (Hospitalization)
  Sender: FDA-Public Use
  Company Number: B0647401A

PATIENT
  Sex: Female

DRUGS (2)
  1. AUGMENTIN '125' [Suspect]
     Indication: BRONCHITIS
     Route: 048
     Dates: start: 20100223, end: 20100224
  2. ZECLAR [Concomitant]
     Route: 065
     Dates: start: 20100224

REACTIONS (4)
  - CONDITION AGGRAVATED [None]
  - HYPERTHERMIA [None]
  - RASH MACULO-PAPULAR [None]
  - RASH MORBILLIFORM [None]
